FAERS Safety Report 9419498 (Version 1)
Quarter: 2013Q3

REPORT INFORMATION
  Report Type: Spontaneous
  Country: US (occurrence: None)
  Receive Date: 20130724
  Receipt Date: 20130724
  Transmission Date: 20140515
  Serious: Yes (Hospitalization, Disabling)
  Sender: FDA-Public Use
  Company Number: None

PATIENT
  Age: 33 Year
  Sex: Female

DRUGS (2)
  1. MINOCYCLINE [Suspect]
     Indication: ACNE
     Dosage: 1 MONTH SUPPLY 1X DAY BY MOUTH
     Route: 048
     Dates: start: 20080922, end: 200811
  2. MULTI VITAMIN [Concomitant]

REACTIONS (4)
  - Headache [None]
  - Vision blurred [None]
  - Papilloedema [None]
  - Mass [None]
